FAERS Safety Report 16984305 (Version 2)
Quarter: 2024Q1

REPORT INFORMATION
  Report Type: Spontaneous
  Country: US (occurrence: US)
  Receive Date: 20191101
  Receipt Date: 20240321
  Transmission Date: 20240410
  Serious: Yes (Hospitalization)
  Sender: FDA-Public Use
  Company Number: US-FARMAPROD-201906-0951

PATIENT
  Age: 60 Year
  Sex: Female

DRUGS (8)
  1. OXERVATE [Suspect]
     Active Substance: CENEGERMIN-BKBJ
     Indication: Neurotrophic keratopathy
     Route: 047
     Dates: start: 20190408, end: 20190625
  2. OXERVATE [Suspect]
     Active Substance: CENEGERMIN-BKBJ
     Indication: Corneal opacity
     Route: 047
     Dates: start: 20240202
  3. METFORMIN [Concomitant]
     Active Substance: METFORMIN HYDROCHLORIDE
  4. MONTELUKAST SODIUM [Concomitant]
     Active Substance: MONTELUKAST SODIUM
  5. ATORVASTATIN CALCIUM [Concomitant]
     Active Substance: ATORVASTATIN CALCIUM
  6. LOSARTAN POTASSIUM [Concomitant]
     Active Substance: LOSARTAN POTASSIUM
  7. LASIX [Concomitant]
     Active Substance: FUROSEMIDE
  8. CARVEDILOL [Concomitant]
     Active Substance: CARVEDILOL
     Route: 048

REACTIONS (7)
  - Hospitalisation [Not Recovered/Not Resolved]
  - Ocular hyperaemia [Recovered/Resolved]
  - Periorbital oedema [Recovered/Resolved]
  - Erythema [Recovered/Resolved]
  - Face oedema [Recovered/Resolved]
  - Eyelid pain [Unknown]
  - Eye pain [Unknown]

NARRATIVE: CASE EVENT DATE: 20190415
